FAERS Safety Report 20512635 (Version 1)
Quarter: 2022Q1

REPORT INFORMATION
  Report Type: Spontaneous
  Country: TW (occurrence: TW)
  Receive Date: 20220224
  Receipt Date: 20220224
  Transmission Date: 20220423
  Serious: Yes (Hospitalization, Other)
  Sender: FDA-Public Use
  Company Number: TW-ELI_LILLY_AND_COMPANY-TW202202008025

PATIENT
  Age: 58 Year
  Sex: Female

DRUGS (5)
  1. CYRAMZA [Suspect]
     Active Substance: RAMUCIRUMAB
     Indication: Product used for unknown indication
     Dosage: 500 MG, UNKNOWN
     Route: 065
     Dates: start: 20211118
  2. DACOMITINIB [Suspect]
     Active Substance: DACOMITINIB
     Indication: Product used for unknown indication
     Dosage: 15 MG, UNKNOWN (FIRST REGIMEN)
     Route: 065
     Dates: start: 20211012
  3. DACOMITINIB [Suspect]
     Active Substance: DACOMITINIB
     Dosage: 30 MG, DAILY (SECOND REGIMEN)
     Route: 065
     Dates: start: 20211019
  4. DACOMITINIB [Suspect]
     Active Substance: DACOMITINIB
     Dosage: 30 MG, QOD (THIRD REGIMEN)
     Route: 065
     Dates: start: 20211103, end: 20211201
  5. IRESSA [Suspect]
     Active Substance: GEFITINIB
     Indication: Product used for unknown indication
     Dosage: 250 MG, DAILY
     Route: 065
     Dates: start: 20211202

REACTIONS (4)
  - Cachexia [Unknown]
  - Hepatic function abnormal [Unknown]
  - Diarrhoea [Unknown]
  - Rash [Unknown]
